FAERS Safety Report 6066912-0 (Version None)
Quarter: 2009Q1

REPORT INFORMATION
  Report Type: 
  Country: None (occurrence: None)
  Receive Date: 20090205
  Receipt Date: 20081015
  Transmission Date: 20090719
  Serious: No
  Sender: FDA-Public Use
  Company Number: US-ABBOTT-08P-163-0482295-00

PATIENT
  Sex: Female
  Weight: 66.284 kg

DRUGS (6)
  1. VICODIN [Suspect]
     Indication: DRUG USE FOR UNKNOWN INDICATION
  2. LEVOTHYROXINE SODIUM [Concomitant]
     Indication: HYPOTHYROIDISM
     Route: 048
     Dates: start: 19980101
  3. ACETYLSALICYLIC ACID SRT [Concomitant]
     Indication: DRUG USE FOR UNKNOWN INDICATION
     Route: 048
  4. PREGABALIN [Concomitant]
     Indication: DRUG USE FOR UNKNOWN INDICATION
  5. LUBIPROSTONE [Concomitant]
     Indication: IRRITABLE BOWEL SYNDROME
     Route: 048
  6. MACROGOL [Concomitant]
     Indication: CONSTIPATION
     Dosage: 1 SCOOP
     Route: 048

REACTIONS (1)
  - RASH [None]
